FAERS Safety Report 15524512 (Version 15)
Quarter: 2021Q1

REPORT INFORMATION
  Report Type: Spontaneous
  Country: US (occurrence: US)
  Receive Date: 20181018
  Receipt Date: 20210326
  Transmission Date: 20210419
  Serious: Yes (Other)
  Sender: FDA-Public Use
  Company Number: US-PFIZER INC-2018414284

PATIENT
  Age: 70 Year
  Sex: Female
  Weight: 84 kg

DRUGS (12)
  1. AMLODIPINE BESYLATE. [Concomitant]
     Active Substance: AMLODIPINE BESYLATE
     Dosage: 5 MG
     Dates: start: 2014
  2. HYDROCHLOROTHIAZIDE. [Concomitant]
     Active Substance: HYDROCHLOROTHIAZIDE
     Dosage: 12.5 MG
     Dates: start: 2014
  3. PAMELOR [Concomitant]
     Active Substance: NORTRIPTYLINE HYDROCHLORIDE
     Dosage: 10 MG
     Dates: start: 2009
  4. NADOLOL. [Concomitant]
     Active Substance: NADOLOL
     Dosage: UNK
     Dates: start: 2009
  5. METFORMIN [Concomitant]
     Active Substance: METFORMIN HYDROCHLORIDE
     Dosage: UNK
     Dates: start: 2009
  6. IBRANCE [Suspect]
     Active Substance: PALBOCICLIB
     Dosage: 75 MG, CYCLIC (ONCE A DAY)
     Route: 048
  7. LETROZOLE. [Suspect]
     Active Substance: LETROZOLE
     Indication: BREAST CANCER FEMALE
     Dosage: 2.5 MG, 1X/DAY
     Route: 048
     Dates: start: 201808
  8. PAMELOR [Concomitant]
     Active Substance: NORTRIPTYLINE HYDROCHLORIDE
     Dosage: 25 MG
     Dates: start: 201901
  9. VIT D [Concomitant]
     Active Substance: VITAMIN D NOS
     Dosage: UNK, DAILY
  10. IBRANCE [Suspect]
     Active Substance: PALBOCICLIB
     Dosage: 100 MG, CYCLIC (ONCE A DAY 21 DAYS THEN OFF FOR 7 DAYS)
     Route: 048
     Dates: start: 201811
  11. IBRANCE [Suspect]
     Active Substance: PALBOCICLIB
     Indication: BREAST CANCER FEMALE
     Dosage: 125 MG, CYCLIC (ONCE A DAY 21 DAYS THEN OFF FOR 7 DAYS)
     Route: 048
     Dates: start: 20180829, end: 2018
  12. ALKA SELTZER PLUS ALLERGY [BROMPHENIRAMINE MALEATE;PARACETAMOL;PSEUDOE [Concomitant]
     Dosage: UNK

REACTIONS (18)
  - Contusion [Unknown]
  - Alopecia [Not Recovered/Not Resolved]
  - Negative thoughts [Unknown]
  - Sleep disorder [Unknown]
  - Pain [Recovering/Resolving]
  - Blood cholesterol increased [Unknown]
  - Drug-induced liver injury [Unknown]
  - Gait inability [Unknown]
  - Anxiety [Unknown]
  - Influenza [Unknown]
  - Glycosylated haemoglobin increased [Unknown]
  - Malaise [Unknown]
  - Emotional disorder [Unknown]
  - Blood glucose abnormal [Unknown]
  - White blood cell count decreased [Recovered/Resolved]
  - Feeling abnormal [Recovered/Resolved]
  - Weight loss poor [Unknown]
  - Pollakiuria [Unknown]

NARRATIVE: CASE EVENT DATE: 2018
